FAERS Safety Report 9789855 (Version 3)
Quarter: 2014Q1

REPORT INFORMATION
  Report Type: Report from Study
  Country: US (occurrence: US)
  Receive Date: 20131231
  Receipt Date: 20140123
  Transmission Date: 20141002
  Serious: Yes (Hospitalization)
  Sender: FDA-Public Use
  Company Number: US-ROCHE-1281441

PATIENT
  Sex: Male

DRUGS (9)
  1. LUCENTIS [Suspect]
     Indication: AGE-RELATED MACULAR DEGENERATION
     Dosage: 3-4 MM FROM THE LIMBUS; MOST RECENT DOSE ON 11/SEP/2013
     Route: 031
     Dates: start: 20121024, end: 20130109
  2. LUCENTIS [Suspect]
     Indication: CATARACT NUCLEAR
     Dosage: OS
     Route: 050
     Dates: start: 20131107
  3. LUCENTIS [Suspect]
     Indication: VITREOUS DETACHMENT
  4. LUCENTIS [Suspect]
     Indication: DIABETIC RETINOPATHY
  5. LUCENTIS [Suspect]
     Indication: DIABETIC RETINAL OEDEMA
  6. LANTUS [Concomitant]
     Route: 058
  7. NEURONTIN (UNITED STATES) [Concomitant]
  8. LASIX [Concomitant]
  9. GLUCOPHAGE [Concomitant]

REACTIONS (5)
  - Appendicectomy [Unknown]
  - Cystoid macular oedema [Unknown]
  - Diabetic retinal oedema [Unknown]
  - Retinal scar [Unknown]
  - Vision blurred [Unknown]
